FAERS Safety Report 18692067 (Version 1)
Quarter: 2021Q1

REPORT INFORMATION
  Report Type: Report from Study
  Country: EG (occurrence: EG)
  Receive Date: 20210102
  Receipt Date: 20210102
  Transmission Date: 20210419
  Serious: Yes (Other)
  Sender: FDA-Public Use
  Company Number: NVSC2020EG344779

PATIENT
  Age: 11 Year
  Sex: Male
  Weight: 57 kg

DRUGS (3)
  1. HYDROCORTISONE. [Concomitant]
     Active Substance: HYDROCORTISONE
     Indication: PRODUCT USED FOR UNKNOWN INDICATION
     Dosage: 3 DF, QD (STARTED SINCE THE PATIENT WAS 15 DAYS OLD AND STILL ONGOING)
     Route: 065
  2. OMNITROPE [Suspect]
     Active Substance: SOMATROPIN
     Indication: BODY HEIGHT BELOW NORMAL
     Dosage: 1.8 MG, QD
     Route: 058
     Dates: start: 20201221
  3. CORTILON [Concomitant]
     Indication: PRODUCT USED FOR UNKNOWN INDICATION
     Dosage: 1.5 DF, QD (STARTED SINCE THE PATIENT WAS 15 DAYS OLD AND STILL ONGOING)
     Route: 065

REACTIONS (4)
  - Mood altered [Not Recovered/Not Resolved]
  - Injection site pain [Recovered/Resolved]
  - Abnormal behaviour [Not Recovered/Not Resolved]
  - Inappropriate affect [Not Recovered/Not Resolved]

NARRATIVE: CASE EVENT DATE: 20201221
